FAERS Safety Report 26212265 (Version 1)
Quarter: 2025Q4

REPORT INFORMATION
  Report Type: Spontaneous
  Country: CN (occurrence: CN)
  Receive Date: 20251230
  Receipt Date: 20251230
  Transmission Date: 20260118
  Serious: Yes (Other)
  Sender: SANOFI AVENTIS
  Company Number: CN-SA-2025SA387755

PATIENT
  Age: 76 Year
  Sex: Male
  Weight: 65 kg

DRUGS (1)
  1. ENOXAPARIN SODIUM [Suspect]
     Active Substance: ENOXAPARIN SODIUM
     Indication: Peripheral vein thrombosis
     Dosage: 0.4 ML, QD
     Route: 058
     Dates: start: 20251219, end: 20251219

REACTIONS (2)
  - Temperature intolerance [Recovered/Resolved]
  - Chills [Recovered/Resolved]

NARRATIVE: CASE EVENT DATE: 20251219
